FAERS Safety Report 21662174 (Version 7)
Quarter: 2023Q2

REPORT INFORMATION
  Report Type: Spontaneous
  Country: US (occurrence: US)
  Receive Date: 20221130
  Receipt Date: 20230413
  Transmission Date: 20230722
  Serious: No
  Sender: FDA-Public Use
  Company Number: US-PFIZER INC-PV202200112876

PATIENT
  Age: 77 Year
  Sex: Female

DRUGS (3)
  1. IBRANCE [Suspect]
     Active Substance: PALBOCICLIB
     Dosage: 125 MG
     Dates: start: 20221101
  2. IBRANCE [Suspect]
     Active Substance: PALBOCICLIB
     Dosage: 100 MG
  3. IBRANCE [Suspect]
     Active Substance: PALBOCICLIB
     Dosage: 75 MG

REACTIONS (12)
  - Dizziness [Recovering/Resolving]
  - Fatigue [Unknown]
  - Oral mucosal blistering [Unknown]
  - Gingival blister [Unknown]
  - Depression [Not Recovered/Not Resolved]
  - Stomatitis [Unknown]
  - Oral pain [Unknown]
  - White blood cell count decreased [Unknown]
  - Alopecia [Unknown]
  - Mouth ulceration [Unknown]
  - Back pain [Unknown]
  - Loss of personal independence in daily activities [Unknown]

NARRATIVE: CASE EVENT DATE: 20221101
